FAERS Safety Report 7647546-0 (Version None)
Quarter: 2011Q3

REPORT INFORMATION
  Report Type: 
  Country: None (occurrence: None)
  Receive Date: 20110801
  Receipt Date: 20110722
  Transmission Date: 20111222
  Serious: Yes (Other)
  Sender: FDA-Public Use
  Company Number: US-SANOFI-AVENTIS-2011SA047562

PATIENT
  Sex: Female

DRUGS (4)
  1. LANTUS [Suspect]
     Indication: TYPE 2 DIABETES MELLITUS
     Dosage: 16 UNITS THE MORNING AND 58 UNITS IN THE EVENING
     Route: 058
     Dates: start: 20040101
  2. NOVOLOG [Suspect]
     Indication: TYPE 2 DIABETES MELLITUS
     Route: 065
  3. SOLOSTAR [Suspect]
     Indication: TYPE 2 DIABETES MELLITUS
     Dates: start: 20110701
  4. ALL OTHER THERAPEUTIC PRODUCTS [Concomitant]

REACTIONS (8)
  - HYPOAESTHESIA [None]
  - QUADRIPARESIS [None]
  - HYPERSENSITIVITY [None]
  - SPINAL CORD INJURY [None]
  - PRURITUS [None]
  - NEPHROPATHY [None]
  - SPINAL FUSION SURGERY [None]
  - RASH ERYTHEMATOUS [None]
